FAERS Safety Report 6266732-8 (Version None)
Quarter: 2009Q3

REPORT INFORMATION
  Report Type: 
  Country: None (occurrence: None)
  Receive Date: 20090714
  Receipt Date: 20070531
  Transmission Date: 20100115
  Serious: Yes (Hospitalization, Other)
  Sender: FDA-Public Use
  Company Number: US-ASTRAZENECA-2006UW25250

PATIENT
  Age: 20213 Day
  Sex: Male
  Weight: 149.7 kg

DRUGS (16)
  1. SEROQUEL [Suspect]
     Dosage: 200 MG ONE TABLET AT BED TIME
     Route: 048
     Dates: start: 20060209
  2. SEROQUEL [Suspect]
     Route: 048
     Dates: end: 20060101
  3. ZYPREXA [Concomitant]
  4. PROZAC [Concomitant]
  5. MIRTAZAPINE [Concomitant]
  6. TRAZODONE [Concomitant]
  7. GABAPENTIN [Concomitant]
  8. LOSARTAN POTASSIUM [Concomitant]
  9. DOXAZOSIN MESYLATE [Concomitant]
  10. AMLODIPINE [Concomitant]
  11. HYDRALAZINE HCL [Concomitant]
  12. GLIPIZIDE [Concomitant]
  13. ASPIRIN [Concomitant]
  14. HYDROCHLOROTHIAZIDE [Concomitant]
  15. LOVASTATIN [Concomitant]
  16. INSULIN GLARGINE [Concomitant]

REACTIONS (7)
  - ANGINA PECTORIS [None]
  - CARDIAC DISORDER [None]
  - CARDIAC FAILURE CONGESTIVE [None]
  - DIABETES MELLITUS [None]
  - DIABETIC RETINOPATHY [None]
  - RENAL FAILURE [None]
  - TARDIVE DYSKINESIA [None]
